FAERS Safety Report 13495426 (Version 1)
Quarter: 2017Q2

REPORT INFORMATION
  Report Type: Report from Study
  Country: US (occurrence: US)
  Receive Date: 20170428
  Receipt Date: 20170428
  Transmission Date: 20170830
  Serious: Yes (Other)
  Sender: FDA-Public Use
  Company Number: US-CIPLA (EU) LIMITED-E2B_00002316

PATIENT

DRUGS (3)
  1. AZD7762 [Suspect]
     Active Substance: INVESTIGATIONAL PRODUCT
     Dosage: 40 MG, SUBSEQUENT CYCLES
     Route: 042
  2. AZD7762 [Suspect]
     Active Substance: INVESTIGATIONAL PRODUCT
     Indication: NEOPLASM
     Dosage: 40 MG, 60-MIN IV INFUSION ON DAYS 1 AND 8 OF A 14-DAY RUN-IN CYCLE
     Route: 042
  3. GEMCITABINE [Suspect]
     Active Substance: GEMCITABINE\GEMCITABINE HYDROCHLORIDE
     Indication: NEOPLASM
     Dosage: 750 OR 1,000 MG/M2, 30-MIN IV INFUSION
     Route: 042

REACTIONS (3)
  - Neutropenia [Unknown]
  - Device related infection [Unknown]
  - Leukopenia [Unknown]
